FAERS Safety Report 10407289 (Version 1)
Quarter: 2014Q3

REPORT INFORMATION
  Report Type: Spontaneous
  Country: US (occurrence: US)
  Receive Date: 20140825
  Receipt Date: 20140825
  Transmission Date: 20150326
  Serious: No
  Sender: FDA-Public Use
  Company Number: US-ELI_LILLY_AND_COMPANY-US201408000245

PATIENT
  Age: 77 Year
  Sex: Male
  Weight: 93.42 kg

DRUGS (1)
  1. HUMALOG [Suspect]
     Active Substance: INSULIN LISPRO
     Indication: PRODUCT USED FOR UNKNOWN INDICATION
     Dosage: UNK, UNKNOWN
     Route: 058

REACTIONS (3)
  - Infusion site irritation [Recovered/Resolved]
  - Blood glucose increased [Recovered/Resolved]
  - Infusion site haemorrhage [Recovered/Resolved]

NARRATIVE: CASE EVENT DATE: 201407
